FAERS Safety Report 5056100-9 (Version None)
Quarter: 2006Q3

REPORT INFORMATION
  Report Type: 
  Country: None (occurrence: None)
  Receive Date: 20060717
  Receipt Date: 20060710
  Transmission Date: 20061208
  Serious: Yes (Hospitalization)
  Sender: FDA-Public Use
  Company Number: 2006P1000354

PATIENT
  Age: 70 Year
  Sex: Male

DRUGS (10)
  1. RETEPLASE (RETEPLASE) [Suspect]
     Indication: ACUTE MYOCARDIAL INFARCTION
     Dosage: IV
     Route: 042
     Dates: start: 20060131, end: 20060131
  2. REOPRO [Suspect]
     Indication: ACUTE MYOCARDIAL INFARCTION
     Dosage: IV
     Route: 042
     Dates: start: 20060131, end: 20060131
  3. ACETYLSALICYLIC ACID SRT [Concomitant]
  4. CLOPIDOGREL [Concomitant]
  5. ACEBUTOLOL [Concomitant]
  6. RAMIPRIL [Concomitant]
  7. METFORMIN [Concomitant]
  8. ATORVASTATIN CALCIUM [Concomitant]
  9. METFORMIN HYDROCHLORIDE [Concomitant]
  10. ATORVASTATIN CALCIUM [Concomitant]

REACTIONS (6)
  - CORONARY ARTERY RESTENOSIS [None]
  - CORONARY ARTERY STENOSIS [None]
  - MYOCARDIAL INFARCTION [None]
  - MYOCARDIAL ISCHAEMIA [None]
  - SURGICAL PROCEDURE REPEATED [None]
  - VENTRICULAR HYPOKINESIA [None]
